FAERS Safety Report 14786667 (Version 5)
Quarter: 2022Q1

REPORT INFORMATION
  Report Type: Spontaneous
  Country: US (occurrence: None)
  Receive Date: 20180420
  Receipt Date: 20220217
  Transmission Date: 20220423
  Serious: Yes (Other)
  Sender: FDA-Public Use
  Company Number: 2018SE47729

PATIENT
  Age: 45 Year
  Sex: Female

DRUGS (34)
  1. NEXIUM [Suspect]
     Active Substance: ESOMEPRAZOLE MAGNESIUM
     Indication: Gastrooesophageal reflux disease
     Route: 048
     Dates: start: 200810, end: 201601
  2. NEXIUM [Suspect]
     Active Substance: ESOMEPRAZOLE MAGNESIUM
     Indication: Gastrooesophageal reflux disease
     Dosage: VARIOUS YEARS AND DATES INCLUDING BUT NOT LIMITED TO 2016.
     Route: 048
  3. NEXIUM [Suspect]
     Active Substance: ESOMEPRAZOLE MAGNESIUM
     Indication: Gastrooesophageal reflux disease
     Route: 048
     Dates: start: 20081231
  4. NEXIUM [Suspect]
     Active Substance: ESOMEPRAZOLE MAGNESIUM
     Indication: Gastrooesophageal reflux disease
     Dosage: GENERIC
     Route: 065
     Dates: start: 20160215, end: 20160314
  5. NEXIUM [Suspect]
     Active Substance: ESOMEPRAZOLE MAGNESIUM
     Indication: Gastrooesophageal reflux disease
     Route: 048
     Dates: start: 2000, end: 2017
  6. NEXIUM 24HR [Suspect]
     Active Substance: ESOMEPRAZOLE MAGNESIUM
     Route: 048
     Dates: start: 200810, end: 201601
  7. PRILOSEC [Suspect]
     Active Substance: OMEPRAZOLE MAGNESIUM
     Route: 048
     Dates: start: 200810, end: 201601
  8. PRILOSEC OTC [Suspect]
     Active Substance: OMEPRAZOLE MAGNESIUM
     Route: 048
     Dates: start: 200810, end: 201601
  9. DEXILANT [Suspect]
     Active Substance: DEXLANSOPRAZOLE
     Route: 065
     Dates: start: 200810, end: 201601
  10. PREVACID [Suspect]
     Active Substance: LANSOPRAZOLE
     Route: 065
     Dates: start: 200810, end: 201601
  11. PREVACID 24 HR [Suspect]
     Active Substance: LANSOPRAZOLE
     Route: 065
     Dates: start: 200810, end: 201601
  12. PROTONIX [Suspect]
     Active Substance: PANTOPRAZOLE SODIUM
     Route: 065
     Dates: start: 200810, end: 201601
  13. LISINOPRIL [Concomitant]
     Active Substance: LISINOPRIL
     Indication: Hypertension
  14. LANTUS [Concomitant]
     Active Substance: INSULIN GLARGINE
  15. METFORMIN [Concomitant]
     Active Substance: METFORMIN HYDROCHLORIDE
  16. CARVEDILOL [Concomitant]
     Active Substance: CARVEDILOL
     Indication: Hypertension
  17. ALLOPURINOL [Concomitant]
     Active Substance: ALLOPURINOL
     Indication: Gout
  18. ALLOPURINOL [Concomitant]
     Active Substance: ALLOPURINOL
     Indication: Nephrolithiasis
  19. SIMVASTATIN [Concomitant]
     Active Substance: SIMVASTATIN
     Indication: Blood cholesterol increased
  20. NATEGLINIDE [Concomitant]
     Active Substance: NATEGLINIDE
     Indication: Diabetes mellitus
  21. TYLENOL [Concomitant]
     Active Substance: ACETAMINOPHEN
     Indication: Pain
  22. FAMOTIDINE [Concomitant]
     Active Substance: FAMOTIDINE
     Dates: start: 2017
  23. AMARYL [Concomitant]
     Active Substance: GLIMEPIRIDE
  24. COREG [Concomitant]
     Active Substance: CARVEDILOL
  25. NAPROXEN [Concomitant]
     Active Substance: NAPROXEN
  26. MOTRIN [Concomitant]
     Active Substance: IBUPROFEN
  27. DOXYCYCLINE [Concomitant]
     Active Substance: DOXYCYCLINE
  28. FLEXERIL [Concomitant]
     Active Substance: CYCLOBENZAPRINE HYDROCHLORIDE
  29. AMOXICILLIN [Concomitant]
     Active Substance: AMOXICILLIN
  30. VITAMIN D3 [Concomitant]
     Active Substance: CHOLECALCIFEROL
  31. PEPCID [Concomitant]
     Active Substance: FAMOTIDINE
  32. FLUCONAZOLE [Concomitant]
     Active Substance: FLUCONAZOLE
  33. JANUVIA [Concomitant]
     Active Substance: SITAGLIPTIN PHOSPHATE
  34. GLIMEPIRIDE [Concomitant]
     Active Substance: GLIMEPIRIDE

REACTIONS (5)
  - Chronic kidney disease [Not Recovered/Not Resolved]
  - Acute kidney injury [Unknown]
  - Renal failure [Unknown]
  - Rebound acid hypersecretion [Unknown]
  - Renal injury [Unknown]

NARRATIVE: CASE EVENT DATE: 20150101
